FAERS Safety Report 14269012 (Version 1)
Quarter: 2017Q4

REPORT INFORMATION
  Report Type: Spontaneous
  Country: GB (occurrence: GB)
  Receive Date: 20171211
  Receipt Date: 20171211
  Transmission Date: 20180321
  Serious: Yes (Other)
  Sender: FDA-Public Use
  Company Number: GB-OTSUKA-DJ20126363

PATIENT
  Age: 15 Year
  Sex: Female

DRUGS (5)
  1. CETIRIZINE HCL [Interacting]
     Active Substance: CETIRIZINE HYDROCHLORIDE
     Indication: SEASONAL ALLERGY
     Dosage: UNK, OCCASIONAL
     Route: 048
  2. ETONOGESTREL [Interacting]
     Active Substance: ETONOGESTREL
     Indication: CONTRACEPTION
     Dosage: 68 MG, UNK
     Route: 058
  3. ABILIFY [Suspect]
     Active Substance: ARIPIPRAZOLE
     Indication: BIPOLAR DISORDER
     Dosage: UNK
     Route: 065
  4. LAMICTAL [Interacting]
     Active Substance: LAMOTRIGINE
     Indication: BIPOLAR DISORDER
     Dosage: 50 MG, TID
     Route: 048
  5. LAMOTRIGINE. [Interacting]
     Active Substance: LAMOTRIGINE
     Indication: BIPOLAR DISORDER
     Dosage: 50 MG, TID
     Route: 048

REACTIONS (5)
  - Abortion spontaneous [Unknown]
  - Drug interaction [Unknown]
  - Pregnancy with implant contraceptive [Unknown]
  - Pregnancy on contraceptive [Unknown]
  - Metrorrhagia [Unknown]
